FAERS Safety Report 9200201 (Version 1)
Quarter: 2013Q1

REPORT INFORMATION
  Report Type: Spontaneous
  Country: FR (occurrence: FR)
  Receive Date: 20130329
  Receipt Date: 20130329
  Transmission Date: 20140127
  Serious: Yes (Death, Other)
  Sender: FDA-Public Use
  Company Number: FR-JNJFOC-20130317240

PATIENT
  Sex: Female

DRUGS (5)
  1. DOXORUBICIN HYDROCHLORIDE [Suspect]
     Indication: SARCOMA UTERUS
     Dosage: DAY 1
     Route: 042
  2. IFOSFAMIDE [Suspect]
     Indication: SARCOMA UTERUS
     Dosage: 3G/M2/DAY ON DAYS 1 AND 2
     Route: 065
  3. CISPLATIN [Suspect]
     Indication: SARCOMA UTERUS
     Dosage: ON DAY 3
     Route: 065
  4. MESNA [Suspect]
     Indication: SARCOMA UTERUS
     Dosage: 3 G/M2 PER DAY ON DAYS 1 AND 2
     Route: 065
  5. LENOGRASTIM [Suspect]
     Indication: SARCOMA UTERUS
     Dosage: DAYS 7 TO 14
     Route: 065

REACTIONS (3)
  - Septic shock [Fatal]
  - Toxicity to various agents [Unknown]
  - Off label use [Unknown]
